FAERS Safety Report 16022888 (Version 2)
Quarter: 2019Q1

REPORT INFORMATION
  Report Type: Spontaneous
  Country: US (occurrence: US)
  Receive Date: 20190301
  Receipt Date: 20190326
  Transmission Date: 20190418
  Serious: No
  Sender: FDA-Public Use
  Company Number: US-PFIZER INC-2019089172

PATIENT
  Age: 26 Year
  Sex: Female

DRUGS (4)
  1. CISPLATIN. [Suspect]
     Active Substance: CISPLATIN
     Indication: PANCREATIC CARCINOMA STAGE IV
     Dosage: UNK
     Route: 065
  2. GEMCITABINE HYDROCHLORIDE. [Suspect]
     Active Substance: GEMCITABINE HYDROCHLORIDE
     Indication: PANCREATIC CARCINOMA STAGE IV
     Dosage: UNK
     Route: 065
  3. ABRAXANE [Suspect]
     Active Substance: PACLITAXEL
     Indication: PANCREATIC CARCINOMA STAGE IV
     Dosage: UNK
     Route: 065
  4. NIVOLUMAB [Suspect]
     Active Substance: NIVOLUMAB
     Indication: PANCREATIC CARCINOMA STAGE IV
     Dosage: UNK
     Route: 065

REACTIONS (1)
  - Neoplasm progression [Unknown]
